FAERS Safety Report 14549218 (Version 8)
Quarter: 2018Q2

REPORT INFORMATION
  Report Type: Report from Study
  Country: BE (occurrence: BE)
  Receive Date: 20180219
  Receipt Date: 20180607
  Transmission Date: 20180711
  Serious: Yes (Hospitalization)
  Sender: FDA-Public Use
  Company Number: PHHY2018BE020868

PATIENT
  Age: 78 Year
  Sex: Male
  Weight: 59 kg

DRUGS (5)
  1. SPIROLACTON [Concomitant]
     Indication: DIURETIC THERAPY
     Dosage: 25 OT, UNK
     Route: 065
     Dates: start: 20141017, end: 20180201
  2. BUMETANIDE. [Concomitant]
     Active Substance: BUMETANIDE
     Indication: DIURETIC THERAPY
     Dosage: 2.5 MG, UNK
     Route: 065
     Dates: start: 20171226, end: 20180201
  3. ENTRESTO [Suspect]
     Active Substance: SACUBITRIL\VALSARTAN
     Indication: CARDIAC FAILURE CHRONIC
     Dosage: 100 MG (49 MG SACUBITRIL/51 MG VALSARTAN), BID
     Route: 048
     Dates: start: 20180109, end: 20180201
  4. BUMETANIDE. [Concomitant]
     Active Substance: BUMETANIDE
     Dosage: 1 MG, UNK
     Route: 065
     Dates: start: 20180201
  5. ENTRESTO [Suspect]
     Active Substance: SACUBITRIL\VALSARTAN
     Indication: CARDIAC FAILURE
     Dosage: 50 MG (24 MG SACUBITRIL/26 MG VALSARTAN), BID
     Route: 048
     Dates: start: 20171226, end: 20180108

REACTIONS (13)
  - General physical health deterioration [Recovered/Resolved]
  - Hypotension [Not Recovered/Not Resolved]
  - Hyperkalaemia [Recovered/Resolved]
  - Anxiety [Recovered/Resolved]
  - Brain natriuretic peptide increased [Recovered/Resolved]
  - Fall [Recovered/Resolved]
  - Vertigo [Recovered/Resolved]
  - Dyspnoea [Recovering/Resolving]
  - Dyspnoea [Recovered/Resolved]
  - Dehydration [Recovered/Resolved]
  - Abdominal pain [Recovered/Resolved]
  - Malaise [Recovered/Resolved]
  - Renal failure [Recovered/Resolved]

NARRATIVE: CASE EVENT DATE: 20180201
